FAERS Safety Report 11822069 (Version 1)
Quarter: 2015Q4

REPORT INFORMATION
  Report Type: Spontaneous
  Country: US (occurrence: US)
  Receive Date: 20151210
  Receipt Date: 20151210
  Transmission Date: 20160305
  Serious: No
  Sender: FDA-Public Use
  Company Number: US-JNJFOC-20150708860

PATIENT
  Age: 86 Year
  Sex: Male

DRUGS (14)
  1. MAGNESIUM [Concomitant]
     Active Substance: MAGNESIUM
  2. BENADRYL [Concomitant]
     Active Substance: DIPHENHYDRAMINE HYDROCHLORIDE
  3. TYLENOL [Concomitant]
     Active Substance: ACETAMINOPHEN
  4. IMBRUVICA [Suspect]
     Active Substance: IBRUTINIB
     Indication: CHRONIC LYMPHOCYTIC LEUKAEMIA
     Route: 048
     Dates: start: 20140920
  5. TEMAZEPAM. [Concomitant]
     Active Substance: TEMAZEPAM
  6. ZINC [Concomitant]
     Active Substance: ZINC\ZINC CHLORIDE
  7. IMMUNOGLOBULIN [Concomitant]
     Active Substance: HUMAN IMMUNOGLOBULIN G
  8. FLUCONAZOLE. [Concomitant]
     Active Substance: FLUCONAZOLE
  9. VITAMINS [Concomitant]
     Active Substance: VITAMINS
  10. ALBUTEROL. [Concomitant]
     Active Substance: ALBUTEROL
  11. VITAMIN B12 [Concomitant]
     Active Substance: CYANOCOBALAMIN
  12. RANITIDINE [Concomitant]
     Active Substance: RANITIDINE\RANITIDINE HYDROCHLORIDE
  13. FAT EMULSION NOS [Concomitant]
     Active Substance: EGG PHOSPHOLIPIDS\SAFFLOWER OIL\SOYBEAN OIL
  14. LORATADINE. [Concomitant]
     Active Substance: LORATADINE

REACTIONS (4)
  - Nail infection [Recovering/Resolving]
  - Impaired healing [Recovering/Resolving]
  - Oral infection [Recovering/Resolving]
  - Swollen tongue [Unknown]

NARRATIVE: CASE EVENT DATE: 20141118
